FAERS Safety Report 22937544 (Version 2)
Quarter: 2023Q4

REPORT INFORMATION
  Report Type: Spontaneous
  Country: CA (occurrence: CA)
  Receive Date: 20230913
  Receipt Date: 20231016
  Transmission Date: 20240109
  Serious: No
  Sender: FDA-Public Use
  Company Number: CA-UCBSA-2023044294

PATIENT
  Sex: Female

DRUGS (1)
  1. NEUPRO [Suspect]
     Active Substance: ROTIGOTINE
     Indication: Product used for unknown indication
     Dosage: 4 MILLIGRAM, UNK

REACTIONS (4)
  - Adverse drug reaction [Not Recovered/Not Resolved]
  - Loss of personal independence in daily activities [Unknown]
  - Product adhesion issue [Unknown]
  - Incorrect dose administered [Unknown]
